FAERS Safety Report 14293905 (Version 1)
Quarter: 2017Q4

REPORT INFORMATION
  Report Type: Spontaneous
  Country: IT (occurrence: IT)
  Receive Date: 20171216
  Receipt Date: 20171216
  Transmission Date: 20180321
  Serious: Yes (Other)
  Sender: FDA-Public Use
  Company Number: IT-CIPLA LTD.-2017IT25662

PATIENT

DRUGS (3)
  1. SERTRALINE [Suspect]
     Active Substance: SERTRALINE HYDROCHLORIDE
     Indication: GENERALISED ANXIETY DISORDER
     Dosage: 50 MG IN TOTAL
     Route: 048
     Dates: start: 20170926, end: 20170926
  2. ETILTOX 200 MG COMPRESSE [Suspect]
     Active Substance: DISULFIRAM
     Indication: ALCOHOL DETOXIFICATION
     Dosage: 800 MG IN TOTAL
     Route: 048
     Dates: start: 20170926, end: 20170926
  3. VATRAN 5 MG COMPRESSE [Suspect]
     Active Substance: DIAZEPAM
     Indication: ANXIETY DISORDER
     Dosage: IN TOTAL
     Route: 048
     Dates: start: 20170926, end: 20170926

REACTIONS (4)
  - Alcohol abuse [Recovered/Resolved]
  - Intentional self-injury [Recovered/Resolved]
  - Headache [Recovered/Resolved]
  - Drug abuse [Recovered/Resolved]

NARRATIVE: CASE EVENT DATE: 20170926
